FAERS Safety Report 8457028-4 (Version None)
Quarter: 2012Q2

REPORT INFORMATION
  Report Type: 
  Country: None (occurrence: None)
  Receive Date: 20120614
  Receipt Date: 20120529
  Transmission Date: 20120825
  Serious: Yes (Disabling)
  Sender: FDA-Public Use
  Company Number: 1272291

PATIENT
  Age: 72 Year
  Sex: Male

DRUGS (8)
  1. (NORMASE) [Concomitant]
  2. MYCOSTATIN [Concomitant]
  3. CYTARABINE [Suspect]
     Indication: ACUTE MYELOID LEUKAEMIA
     Dosage: 200 MG MILLIGRAM(S), INTRAVENOUS (NOT OTHERWISE SPECIFIED)
     Route: 042
     Dates: start: 20120224, end: 20120301
  4. IDARUBICIN HYDROCHLORIDE [Suspect]
     Indication: ACUTE MYELOID LEUKAEMIA
     Dosage: 24 MG, CYCLIC, INTRAVENOUS (NOT OTHERWISE SPECIFIED)
     Route: 042
     Dates: start: 20120224, end: 20120228
  5. LEVOFLOXACIN [Concomitant]
  6. ZOFRAN [Concomitant]
  7. ALLOPURINOL [Concomitant]
  8. LASIX [Concomitant]

REACTIONS (9)
  - TUMOUR LYSIS SYNDROME [None]
  - FEBRILE BONE MARROW APLASIA [None]
  - HAEMOGLOBIN DECREASED [None]
  - TACHYCARDIA [None]
  - RESPIRATORY FAILURE [None]
  - BLOOD URINE PRESENT [None]
  - PERICARDIAL EFFUSION [None]
  - RENAL FAILURE [None]
  - PLEURAL EFFUSION [None]
